FAERS Safety Report 7622865-2 (Version None)
Quarter: 2011Q3

REPORT INFORMATION
  Report Type: 
  Country: None (occurrence: None)
  Receive Date: 20110720
  Receipt Date: 20110712
  Transmission Date: 20111222
  Serious: Yes (Life-Threatening, Hospitalization, Other)
  Sender: FDA-Public Use
  Company Number: US-BAYER-2011-036840

PATIENT
  Sex: Male
  Weight: 60 kg

DRUGS (11)
  1. CARBOPLATIN [Suspect]
     Indication: METASTATIC SQUAMOUS CELL CARCINOMA
     Dosage: UNK
     Dates: start: 20100527
  2. PACLITAXEL [Suspect]
     Indication: METASTATIC SQUAMOUS CELL CARCINOMA
  3. VIDAZA [Concomitant]
  4. CARBOPLATIN [Suspect]
     Dosage: UNK
     Dates: start: 20100715
  5. CARBOPLATIN [Suspect]
     Dosage: UNK
     Dates: start: 20100916
  6. CARBOPLATIN [Suspect]
     Dosage: UNK
     Dates: start: 20100825
  7. CARBOPLATIN [Suspect]
     Dosage: UNK
     Dates: start: 20100805
  8. SORAFENIB (RAF KINASE INHIBITOR) [Suspect]
     Indication: METASTATIC SQUAMOUS CELL CARCINOMA
     Dosage: 400 MG, DAILY
     Route: 048
     Dates: start: 20100616, end: 20110211
  9. CARBOPLATIN [Suspect]
     Dosage: UNK
     Dates: start: 20101007
  10. CHLORHEXIDINE GLUCONATE [Concomitant]
     Dosage: 473 ML, UNK
     Dates: start: 20110411
  11. SODIUM FLUORIDE [Concomitant]
     Dosage: 1 DF, UNK
     Dates: start: 20110411

REACTIONS (6)
  - PULMONARY OEDEMA [None]
  - MYOCARDIAL INFARCTION [None]
  - RESPIRATORY FAILURE [None]
  - CARDIOGENIC SHOCK [None]
  - PNEUMONIA KLEBSIELLA [None]
  - CARDIO-RESPIRATORY ARREST [None]
